FAERS Safety Report 9258509 (Version 1)
Quarter: 2013Q1

REPORT INFORMATION
  Report Type: Spontaneous
  Country: US (occurrence: None)
  Receive Date: 20121212
  Receipt Date: 20121212
  Transmission Date: 20140127
  Serious: No
  Sender: FDA-Public Use
  Company Number: 1211USA003726

PATIENT
  Age: 58 Year
  Sex: Female
  Weight: 65.8 kg

DRUGS (6)
  1. VICTRELIS [Suspect]
  2. LISINOPRIL [Suspect]
  3. PEGINTRON (PEGINTERFERON ALFA-2B) [Concomitant]
  4. REBETOL (RIBAVIRIN) [Concomitant]
  5. METOPROLOL (METOPROLOL) [Concomitant]
  6. ASPIRIN (ASPIRIN) [Concomitant]

REACTIONS (5)
  - Nausea [None]
  - Vomiting [None]
  - Dizziness [None]
  - Fatigue [None]
  - Rash [None]
